FAERS Safety Report 5043200-2 (Version None)
Quarter: 2006Q2

REPORT INFORMATION
  Report Type: 
  Country: None (occurrence: None)
  Receive Date: 20060628
  Receipt Date: 20060621
  Transmission Date: 20061013
  Serious: Yes (Hospitalization)
  Sender: FDA-Public Use
  Company Number: 2006BI007517

PATIENT
  Age: 45 Year
  Sex: Female

DRUGS (3)
  1. AVONEX [Suspect]
     Indication: MULTIPLE SCLEROSIS
     Dosage: 30 UG;QW;IM
     Route: 030
     Dates: start: 20031107
  2. CLONIDINE [Concomitant]
  3. PROTONIX [Concomitant]

REACTIONS (4)
  - ESCHERICHIA INFECTION [None]
  - PROTEUS INFECTION [None]
  - SYSTEMIC LUPUS ERYTHEMATOSUS [None]
  - UROSEPSIS [None]
